FAERS Safety Report 15222758 (Version 1)
Quarter: 2018Q3

REPORT INFORMATION
  Report Type: Spontaneous
  Country: US (occurrence: US)
  Receive Date: 20180705
  Receipt Date: 20180705
  Transmission Date: 20181010
  Serious: No
  Sender: FDA-Public Use
  Company Number: None

PATIENT
  Age: 63 Year
  Sex: Female
  Weight: 122.47 kg

DRUGS (26)
  1. COREG [Concomitant]
     Active Substance: CARVEDILOL
  2. FLONASE [Concomitant]
     Active Substance: FLUTICASONE PROPIONATE
  3. GLUCOSAMINE [Concomitant]
     Active Substance: GLUCOSAMINE
  4. SIMETHICONE (DIMETHICONE) [Concomitant]
     Active Substance: DIMETHICONE
  5. ACYCLOVIR. [Concomitant]
     Active Substance: ACYCLOVIR
  6. SPIRONOLACTONE. [Concomitant]
     Active Substance: SPIRONOLACTONE
  7. NYSTOP [Concomitant]
     Active Substance: NYSTATIN
  8. ATIVAN [Concomitant]
     Active Substance: LORAZEPAM
  9. PEPCID [Concomitant]
     Active Substance: FAMOTIDINE
  10. ZESTRIL [Concomitant]
     Active Substance: LISINOPRIL
  11. NYSTATIN. [Concomitant]
     Active Substance: NYSTATIN
  12. FLUOCINANIDE [Concomitant]
  13. COQ10 [Concomitant]
     Active Substance: UBIDECARENONE
  14. CALCIUM [Concomitant]
     Active Substance: CALCIUM
  15. LIPITOR [Concomitant]
     Active Substance: ATORVASTATIN CALCIUM
  16. LACTAID [Concomitant]
     Active Substance: LACTASE
  17. BENADRYL [Concomitant]
     Active Substance: DIPHENHYDRAMINE HYDROCHLORIDE
  18. SODIUM FLUORIDE. [Concomitant]
     Active Substance: SODIUM FLUORIDE
  19. MECLAZINE [Concomitant]
  20. ALLEGRA [Concomitant]
     Active Substance: FEXOFENADINE HYDROCHLORIDE
  21. DEXAMETHASONE. [Suspect]
     Active Substance: DEXAMETHASONE
     Indication: DERMATITIS ALLERGIC
     Dosage: ?          QUANTITY:10 PILLS;?
     Route: 048
     Dates: start: 20180608, end: 20180615
  22. LASIX [Concomitant]
     Active Substance: FUROSEMIDE
  23. VIT. MINERALS [Concomitant]
  24. TUMS [Concomitant]
     Active Substance: CALCIUM CARBONATE
  25. ARIMIDEX [Concomitant]
     Active Substance: ANASTROZOLE
  26. VIT. D [Concomitant]

REACTIONS (14)
  - Abdominal pain upper [None]
  - Headache [None]
  - Hyperhidrosis [None]
  - Malaise [None]
  - Pancreatitis [None]
  - Nightmare [None]
  - Skin infection [None]
  - Restlessness [None]
  - Confusional state [None]
  - Disorientation [None]
  - Fatigue [None]
  - Dizziness [None]
  - Hunger [None]
  - Fungal infection [None]

NARRATIVE: CASE EVENT DATE: 20180615
